FAERS Safety Report 9035403 (Version 1)
Quarter: 2013Q1

REPORT INFORMATION
  Report Type: Report from Study
  Country: US (occurrence: US)
  Receive Date: 20130129
  Receipt Date: 20130129
  Transmission Date: 20140127
  Serious: No
  Sender: FDA-Public Use
  Company Number: US-ABBOTT-12P-163-0894849-00

PATIENT
  Sex: Female
  Weight: 58.57 kg

DRUGS (8)
  1. HUMIRA 20 MG/0.4 ML PRE-FILLED SYRINGE [Suspect]
     Indication: RHEUMATOID ARTHRITIS
     Dates: start: 201109, end: 201110
  2. HUMIRA 20 MG/0.4 ML PRE-FILLED SYRINGE [Suspect]
     Dates: start: 20120119
  3. METHOTREXATE [Concomitant]
     Indication: RHEUMATOID ARTHRITIS
     Dosage: 3 ONCE A WEEK
     Dates: end: 201112
  4. METHOTREXATE [Concomitant]
     Dosage: 5 PILLS ONCE A WEEK
     Dates: start: 201112
  5. FLECTOR [Concomitant]
     Indication: PAIN
     Dosage: PATCH
  6. VITAMIN D [Concomitant]
     Indication: SUPPLEMENTATION THERAPY
  7. LEVOTHYROXINE [Concomitant]
     Indication: HYPOTHYROIDISM
  8. STATIN [Concomitant]
     Indication: BLOOD CHOLESTEROL INCREASED

REACTIONS (6)
  - Viral infection [Recovered/Resolved]
  - Lower respiratory tract infection [Recovered/Resolved]
  - Arthritis [Not Recovered/Not Resolved]
  - Sinusitis [Recovered/Resolved]
  - Unevaluable event [Recovered/Resolved]
  - Dyspnoea [Recovered/Resolved]
